FAERS Safety Report 25001578 (Version 1)
Quarter: 2025Q1

REPORT INFORMATION
  Report Type: Report from Study
  Country: DE (occurrence: DE)
  Receive Date: 20250223
  Receipt Date: 20250223
  Transmission Date: 20250408
  Serious: Yes (Hospitalization)
  Sender: ABBVIE
  Company Number: DE-ABBVIE-5869851

PATIENT
  Age: 41 Year
  Sex: Female

DRUGS (2)
  1. SKYRIZI [Suspect]
     Active Substance: RISANKIZUMAB-RZAA
     Indication: Psoriasis
     Route: 058
     Dates: start: 202209
  2. SKYRIZI [Suspect]
     Active Substance: RISANKIZUMAB-RZAA
     Route: 058
     Dates: start: 202209

REACTIONS (13)
  - Surgery [Recovered/Resolved]
  - Gastrointestinal disorder [Recovered/Resolved]
  - Psoriasis [Not Recovered/Not Resolved]
  - Dysphagia [Unknown]
  - Stress [Recovered/Resolved]
  - Oesophageal disorder [Not Recovered/Not Resolved]
  - Liver function test increased [Not Recovered/Not Resolved]
  - Concussion [Recovered/Resolved]
  - Arthralgia [Recovered/Resolved]
  - Haemorrhage [Recovered/Resolved]
  - Blood iron increased [Unknown]
  - Pain [Recovered/Resolved]
  - Contusion [Recovered/Resolved]

NARRATIVE: CASE EVENT DATE: 20240101
